FAERS Safety Report 5956317-2 (Version None)
Quarter: 2008Q4

REPORT INFORMATION
  Report Type: 
  Country: None (occurrence: None)
  Receive Date: 20081118
  Receipt Date: 20081105
  Transmission Date: 20090506
  Serious: Yes (Other)
  Sender: FDA-Public Use
  Company Number: PHHY2008JP28258

PATIENT
  Sex: Male

DRUGS (1)
  1. NEORAL [Suspect]
     Indication: MYELODYSPLASTIC SYNDROME
     Dosage: 100MG DAILY
     Route: 048

REACTIONS (4)
  - HEADACHE [None]
  - INSOMNIA [None]
  - PAIN [None]
  - TOOTH DISORDER [None]
